FAERS Safety Report 18024307 (Version 8)
Quarter: 2021Q1

REPORT INFORMATION
  Report Type: Report from Study
  Country: US (occurrence: US)
  Receive Date: 20200715
  Receipt Date: 20210109
  Transmission Date: 20210419
  Serious: Yes (Hospitalization, Disabling, Other)
  Sender: FDA-Public Use
  Company Number: NVSC2020US193797

PATIENT
  Age: 80 Year
  Sex: Female

DRUGS (2)
  1. ENTRESTO [Suspect]
     Active Substance: SACUBITRIL\VALSARTAN
     Dosage: 50 MG, BID (24/ 26 MG)
     Route: 065
  2. ENTRESTO [Suspect]
     Active Substance: SACUBITRIL\VALSARTAN
     Indication: PRODUCT USED FOR UNKNOWN INDICATION
     Dosage: 100 MG, BID (49/ 51 MG)
     Route: 065
     Dates: start: 20200616

REACTIONS (35)
  - Dyspnoea [Recovered/Resolved with Sequelae]
  - Temperature intolerance [Unknown]
  - Sneezing [Unknown]
  - Memory impairment [Unknown]
  - Cough [Unknown]
  - Fatigue [Unknown]
  - Pneumonia [Recovered/Resolved with Sequelae]
  - Anxiety [Unknown]
  - Productive cough [Not Recovered/Not Resolved]
  - Nervousness [Unknown]
  - Throat clearing [Unknown]
  - General physical health deterioration [Unknown]
  - Appetite disorder [Unknown]
  - Malaise [Recovered/Resolved with Sequelae]
  - Cardiac failure congestive [Unknown]
  - Body temperature increased [Recovered/Resolved with Sequelae]
  - Thrombosis [Not Recovered/Not Resolved]
  - Cellulitis [Not Recovered/Not Resolved]
  - Skin disorder [Unknown]
  - Bronchitis [Recovering/Resolving]
  - Dysphonia [Not Recovered/Not Resolved]
  - Gait disturbance [Unknown]
  - Nasal congestion [Unknown]
  - Muscle atrophy [Unknown]
  - Atrial fibrillation [Unknown]
  - Rhinorrhoea [Unknown]
  - Illness [Unknown]
  - Hypotension [Unknown]
  - Pulmonary oedema [Recovered/Resolved with Sequelae]
  - Peripheral swelling [Not Recovered/Not Resolved]
  - Feeling abnormal [Unknown]
  - Dysphagia [Unknown]
  - Nasal disorder [Unknown]
  - Sinus disorder [Unknown]
  - Lacrimation increased [Unknown]

NARRATIVE: CASE EVENT DATE: 2020
